FAERS Safety Report 4390095-6 (Version None)
Quarter: 2004Q3

REPORT INFORMATION
  Report Type: 
  Country: None (occurrence: None)
  Receive Date: 20040706
  Receipt Date: 20040623
  Transmission Date: 20050211
  Serious: Yes (Hospitalization)
  Sender: FDA-Public Use
  Company Number: JP-MERCK-0406USA02451

PATIENT
  Age: 47 Year
  Sex: Male

DRUGS (10)
  1. [THERAPY UNSPECIFIED] [Suspect]
     Route: 048
  2. PL GRAN [Suspect]
     Indication: NASOPHARYNGITIS
     Route: 048
  3. AKINETON [Suspect]
     Route: 048
  4. TEGRETOL [Suspect]
     Route: 048
  5. PEPCID RPD [Suspect]
     Route: 048
  6. PROHANCE [Suspect]
     Route: 042
  7. HALOPERIDOL [Suspect]
     Route: 048
  8. LEVOMEPROMAZINE [Suspect]
     Route: 048
  9. ALEVIATIN [Suspect]
     Route: 048
  10. ARASENA-A [Suspect]
     Route: 042

REACTIONS (1)
  - LIVER DISORDER [None]
